FAERS Safety Report 8138127-3 (Version None)
Quarter: 2012Q1

REPORT INFORMATION
  Report Type: 
  Country: None (occurrence: None)
  Receive Date: 20120215
  Receipt Date: 20120215
  Transmission Date: 20120608
  Serious: Yes (Hospitalization, Other)
  Sender: FDA-Public Use
  Company Number: None

PATIENT
  Age: 57 Year
  Sex: Female
  Weight: 93.893 kg

DRUGS (1)
  1. CLINDAMYCIN [Suspect]

REACTIONS (5)
  - IMPAIRED WORK ABILITY [None]
  - FISTULA [None]
  - RHEUMATOID ARTHRITIS [None]
  - CLOSTRIDIUM DIFFICILE COLITIS [None]
  - PERINEAL ABSCESS [None]
